FAERS Safety Report 24085514 (Version 1)
Quarter: 2024Q3

REPORT INFORMATION
  Report Type: Spontaneous
  Country: GB (occurrence: GB)
  Receive Date: 20240712
  Receipt Date: 20240712
  Transmission Date: 20241017
  Serious: Yes (Other)
  Sender: INCYTE
  Company Number: GB-002147023-NVSC2024GB139218

PATIENT

DRUGS (1)
  1. RUXOLITINIB [Suspect]
     Active Substance: RUXOLITINIB
     Indication: Myelofibrosis
     Dosage: 5 MG, BID
     Route: 065

REACTIONS (4)
  - Basal cell carcinoma [Unknown]
  - Anaemia [Unknown]
  - Squamous cell carcinoma [Unknown]
  - Spleen palpable [Unknown]
